FAERS Safety Report 5118386-1 (Version None)
Quarter: 2006Q3

REPORT INFORMATION
  Report Type: 
  Country: None (occurrence: None)
  Receive Date: 20060926
  Receipt Date: 20060913
  Transmission Date: 20061208
  Serious: Yes (Other)
  Sender: FDA-Public Use
  Company Number: JP200601001934

PATIENT
  Age: 67 Year
  Sex: Male

DRUGS (3)
  1. GEMZAR [Suspect]
     Indication: MALIGNANT NEOPLASM OF RENAL PELVIS
     Dosage: SEE IMAGE
     Dates: start: 20051221, end: 20051221
  2. GEMZAR [Suspect]
     Indication: MALIGNANT NEOPLASM OF RENAL PELVIS
     Dosage: SEE IMAGE
     Dates: start: 20060202
  3. GEMZAR [Suspect]
     Indication: MALIGNANT NEOPLASM OF RENAL PELVIS
     Dosage: SEE IMAGE
     Dates: start: 20060209

REACTIONS (2)
  - BONE MARROW FAILURE [None]
  - INAPPROPRIATE ANTIDIURETIC HORMONE SECRETION [None]
